FAERS Safety Report 11502233 (Version 2)
Quarter: 2015Q3

REPORT INFORMATION
  Report Type: Report from Study
  Country: SG (occurrence: SG)
  Receive Date: 20150914
  Receipt Date: 20150922
  Transmission Date: 20151125
  Serious: Yes (Hospitalization)
  Sender: FDA-Public Use
  Company Number: PHHO2015SG013983

PATIENT
  Age: 56 Year
  Sex: Male
  Weight: 83.8 kg

DRUGS (1)
  1. AIN457 [Suspect]
     Active Substance: SECUKINUMAB
     Indication: PSORIASIS
     Dosage: DOSE BLINDED
     Route: 058
     Dates: start: 20130319

REACTIONS (3)
  - Urinary tract infection [Recovering/Resolving]
  - Myocardial infarction [Not Recovered/Not Resolved]
  - Calculus urinary [Unknown]

NARRATIVE: CASE EVENT DATE: 20150902
